FAERS Safety Report 8407054-6 (Version None)
Quarter: 2012Q2

REPORT INFORMATION
  Report Type: 
  Country: None (occurrence: None)
  Receive Date: 20120604
  Receipt Date: 20120528
  Transmission Date: 20120825
  Serious: Yes (Other)
  Sender: FDA-Public Use
  Company Number: PHHY2012CA030979

PATIENT
  Sex: Female

DRUGS (1)
  1. GILENYA [Suspect]
     Indication: RELAPSING-REMITTING MULTIPLE SCLEROSIS
     Dosage: 0.5 MG, QD
     Route: 048
     Dates: start: 20111219, end: 20120514

REACTIONS (8)
  - VISION BLURRED [None]
  - FATIGUE [None]
  - IRIS HYPOPIGMENTATION [None]
  - OPTIC NEURITIS [None]
  - RETINAL EXUDATES [None]
  - MACULAR OEDEMA [None]
  - MACULAR DEGENERATION [None]
  - WHITE BLOOD CELL COUNT DECREASED [None]
